FAERS Safety Report 16311324 (Version 1)
Quarter: 2019Q2

REPORT INFORMATION
  Report Type: Spontaneous
  Country: CA (occurrence: CA)
  Receive Date: 20190514
  Receipt Date: 20190514
  Transmission Date: 20190711
  Serious: Yes (Hospitalization, Other)
  Sender: FDA-Public Use
  Company Number: CA-SUNOVION-2019SUN001922

PATIENT
  Age: 18 Year
  Sex: Female

DRUGS (4)
  1. APTIOM [Suspect]
     Active Substance: ESLICARBAZEPINE ACETATE
     Indication: PRODUCT USED FOR UNKNOWN INDICATION
     Dosage: 5600.0 MG
     Route: 048
  2. PAROXETINE. [Suspect]
     Active Substance: PAROXETINE
     Indication: DEPRESSION
     Dosage: 20 MG
     Route: 065
  3. ACETAMINOPHEN. [Concomitant]
     Active Substance: ACETAMINOPHEN
     Dosage: UNK
     Route: 065
  4. CODEINE PHOSPHATE [Concomitant]
     Active Substance: CODEINE PHOSPHATE
     Dosage: UNK
     Route: 065

REACTIONS (12)
  - Sinus tachycardia [Recovering/Resolving]
  - Restlessness [Recovering/Resolving]
  - Altered state of consciousness [Recovering/Resolving]
  - Muscle rigidity [Recovering/Resolving]
  - Clonus [Recovering/Resolving]
  - Posturing [Recovering/Resolving]
  - Hyperreflexia [Recovering/Resolving]
  - Hypertonia [Recovering/Resolving]
  - Mydriasis [Recovering/Resolving]
  - Confusional state [Recovering/Resolving]
  - Chills [Recovering/Resolving]
  - Dysarthria [Recovering/Resolving]
